FAERS Safety Report 10156524 (Version 2)
Quarter: 2014Q2

REPORT INFORMATION
  Report Type: Spontaneous
  Country: TR (occurrence: TR)
  Receive Date: 20140507
  Receipt Date: 20140522
  Transmission Date: 20141212
  Serious: Yes (Life-Threatening, Hospitalization, Other)
  Sender: FDA-Public Use
  Company Number: TR-ROCHE-1396907

PATIENT
  Age: 60 Year
  Sex: Female

DRUGS (7)
  1. XOLAIR [Suspect]
     Indication: PRODUCT USED FOR UNKNOWN INDICATION
     Route: 058
     Dates: start: 20130401
  2. XOLAIR [Suspect]
     Route: 058
     Dates: start: 20140401
  3. XOLAIR [Suspect]
     Route: 058
     Dates: start: 20140415
  4. XOLAIR [Suspect]
     Route: 058
     Dates: end: 20140502
  5. SYMBICORT FORTE [Concomitant]
  6. BRICANYL [Concomitant]
  7. TEOFILIN [Concomitant]

REACTIONS (3)
  - Myocardial infarction [Recovered/Resolved]
  - Sepsis [Unknown]
  - Pain [Unknown]
